FAERS Safety Report 17454031 (Version 1)
Quarter: 2020Q1

REPORT INFORMATION
  Report Type: Spontaneous
  Country: BR (occurrence: BR)
  Receive Date: 20200224
  Receipt Date: 20200224
  Transmission Date: 20200409
  Serious: Yes (Other)
  Sender: FDA-Public Use
  Company Number: BR-LUNDBECK-DKLU3012076

PATIENT
  Age: 62 Year
  Sex: Male
  Weight: 85 kg

DRUGS (8)
  1. ENALAPRIL MALEAT [Concomitant]
     Active Substance: ENALAPRIL MALEATE
     Indication: BLOOD PRESSURE INCREASED
     Route: 065
  2. METFORMIN HCL [Concomitant]
     Active Substance: METFORMIN HYDROCHLORIDE
     Indication: DIABETES MELLITUS
     Route: 065
  3. OMEPRAZOLE. [Concomitant]
     Active Substance: OMEPRAZOLE
     Indication: GASTRIC DISORDER
     Route: 065
  4. CLONAZEPAM. [Suspect]
     Active Substance: CLONAZEPAM
     Indication: DEPRESSION
     Route: 048
  5. SIMVASTATIN. [Concomitant]
     Active Substance: SIMVASTATIN
     Indication: BLOOD CHOLESTEROL INCREASED
     Route: 065
  6. URBANYL [Suspect]
     Active Substance: CLOBAZAM
     Indication: SLEEP DISORDER
     Route: 048
  7. URBANYL [Suspect]
     Active Substance: CLOBAZAM
     Indication: DEPRESSION
  8. CLONAZEPAM. [Suspect]
     Active Substance: CLONAZEPAM
     Indication: SLEEP DISORDER
     Route: 048

REACTIONS (9)
  - Feeling abnormal [Unknown]
  - Product use in unapproved indication [Unknown]
  - Malaise [Unknown]
  - Poor quality sleep [Unknown]
  - Nightmare [Unknown]
  - Depression [Recovered/Resolved]
  - Intentional product misuse [Unknown]
  - Drug dependence [Unknown]
  - Wrong technique in product usage process [Unknown]
